FAERS Safety Report 24861505 (Version 1)
Quarter: 2025Q1

REPORT INFORMATION
  Report Type: Spontaneous
  Country: US (occurrence: US)
  Receive Date: 20250120
  Receipt Date: 20250120
  Transmission Date: 20250409
  Serious: Yes (Other)
  Sender: AMGEN
  Company Number: US-AMGEN-USASP2025008202

PATIENT
  Age: 52 Year
  Sex: Male

DRUGS (1)
  1. PREDNISONE [Suspect]
     Active Substance: PREDNISONE
     Indication: Eye inflammation
     Dosage: 60 MILLIGRAM, QD
     Route: 048

REACTIONS (4)
  - Cytomegalovirus chorioretinitis [Recovered/Resolved]
  - Interstitial lung disease [Unknown]
  - Cytomegalovirus viraemia [Unknown]
  - Pulmonary mass [Unknown]
